FAERS Safety Report 24371743 (Version 1)
Quarter: 2024Q3

REPORT INFORMATION
  Report Type: Spontaneous
  Country: US (occurrence: US)
  Receive Date: 20240927
  Receipt Date: 20240927
  Transmission Date: 20241017
  Serious: Yes (Death, Other)
  Sender: MERZ
  Company Number: US-Merz Pharmaceuticals GmbH-2024090000164

PATIENT

DRUGS (1)
  1. XEOMIN [Suspect]
     Active Substance: INCOBOTULINUMTOXINA
     Indication: Dystonia
     Route: 030

REACTIONS (2)
  - Death [Fatal]
  - Overdose [Unknown]
